FAERS Safety Report 13819920 (Version 1)
Quarter: 2017Q3

REPORT INFORMATION
  Report Type: Spontaneous
  Country: US (occurrence: US)
  Receive Date: 20170731
  Receipt Date: 20170731
  Transmission Date: 20171127
  Serious: Yes (Life-Threatening, Hospitalization, Other)
  Sender: FDA-Public Use
  Company Number: US-GLENMARK PHARMACEUTICALS-2017GMK028312

PATIENT
  Age: 76 Year
  Sex: Female

DRUGS (3)
  1. OMEPRAZOLE. [Suspect]
     Active Substance: OMEPRAZOLE
     Indication: PRODUCT USED FOR UNKNOWN INDICATION
     Dosage: 20 MG, QD
     Route: 065
  2. LEVOTHYROXINE. [Concomitant]
     Active Substance: LEVOTHYROXINE
     Indication: PRODUCT USED FOR UNKNOWN INDICATION
     Dosage: 100 MCG, QD
     Route: 065
  3. ATORVASTATIN [Concomitant]
     Active Substance: ATORVASTATIN
     Indication: PRODUCT USED FOR UNKNOWN INDICATION
     Dosage: 10 MG, QD
     Route: 065

REACTIONS (13)
  - Hyperaesthesia [Recovered/Resolved]
  - Decreased vibratory sense [Recovered/Resolved]
  - Supraventricular extrasystoles [Recovered/Resolved]
  - Mental status changes [Recovered/Resolved]
  - Dysmetria [Recovered/Resolved]
  - Hypomagnesaemia [Recovering/Resolving]
  - Atrial fibrillation [Recovered/Resolved]
  - Nystagmus [Recovered/Resolved]
  - Sinus arrhythmia [Recovered/Resolved]
  - Resting tremor [Recovered/Resolved]
  - Atrial tachycardia [Recovered/Resolved]
  - Cerebral ischaemia [Recovered/Resolved]
  - Blood calcium decreased [Recovered/Resolved]
